FAERS Safety Report 5110726-2 (Version None)
Quarter: 2006Q3

REPORT INFORMATION
  Report Type: 
  Country: None (occurrence: None)
  Receive Date: 20060919
  Receipt Date: 20060908
  Transmission Date: 20061208
  Serious: Yes (Life-Threatening, Hospitalization, Disabling, Other)
  Sender: FDA-Public Use
  Company Number: 13479696

PATIENT
  Sex: Female

DRUGS (11)
  1. EMSAM [Suspect]
     Dosage: 12 MILLIGRAM, 1 DAY TD
     Dates: start: 20060710, end: 20060810
  2. TYLENOL [Suspect]
     Dosage: NI
  3. SYNTHROID [Concomitant]
  4. ATIVAN [Concomitant]
  5. RISPERIDONE [Concomitant]
  6. DEYSREL [Concomitant]
  7. PROTONIX [Concomitant]
  8. LASIX [Concomitant]
  9. LISINOPRIL [Concomitant]
  10. LOVASTATIN [Concomitant]
  11. LITHIUM CARBONATE [Concomitant]

REACTIONS (19)
  - ACUTE RESPIRATORY DISTRESS SYNDROME [None]
  - ACUTE RESPIRATORY FAILURE [None]
  - AMNESIA [None]
  - ANALGESIC DRUG LEVEL INCREASED [None]
  - DEPRESSION [None]
  - DRUG INEFFECTIVE [None]
  - GASTRITIS [None]
  - GASTROINTESTINAL HAEMORRHAGE [None]
  - HAEMOGLOBIN DECREASED [None]
  - HEPATIC FAILURE [None]
  - HYPERTENSION [None]
  - HYPERTHYROIDISM [None]
  - HYPOTENSION [None]
  - INFECTION [None]
  - LOSS OF CONSCIOUSNESS [None]
  - MALAISE [None]
  - OVERDOSE [None]
  - RESPIRATORY ARREST [None]
  - SYSTEMIC INFLAMMATORY RESPONSE SYNDROME [None]
